FAERS Safety Report 8010931-1 (Version None)
Quarter: 2011Q4

REPORT INFORMATION
  Report Type: 
  Country: None (occurrence: None)
  Receive Date: 20111228
  Receipt Date: 20111219
  Transmission Date: 20120403
  Serious: Yes (Other)
  Sender: FDA-Public Use
  Company Number: BR-BAYER-2011-041445

PATIENT
  Age: 41 Year
  Sex: Female

DRUGS (1)
  1. LEVONORGESTREL + ETHINYL ESTRADIOL [Suspect]
     Indication: CONTRACEPTION
     Dosage: UNK
     Route: 048
     Dates: start: 20100801, end: 20110401

REACTIONS (3)
  - CAESAREAN SECTION [None]
  - PREGNANCY ON ORAL CONTRACEPTIVE [None]
  - AMENORRHOEA [None]
